FAERS Safety Report 7449994-0 (Version None)
Quarter: 2011Q2

REPORT INFORMATION
  Report Type: 
  Country: None (occurrence: None)
  Receive Date: 20110421
  Receipt Date: 20110408
  Transmission Date: 20111010
  Serious: Yes (Other)
  Sender: FDA-Public Use
  Company Number: 2011SP015982

PATIENT
  Age: 40 Year
  Sex: Female
  Weight: 114.76 kg

DRUGS (5)
  1. MAXAIR [Concomitant]
  2. DULERA TABLET [Suspect]
     Indication: PRODUCT USED FOR UNKNOWN INDICATION
  3. SINGULAIR [Concomitant]
  4. NASONEX [Concomitant]
  5. ZYRTEC [Concomitant]

REACTIONS (2)
  - HEART RATE INCREASED [None]
  - ARRHYTHMIA [None]
